FAERS Safety Report 9492433 (Version 1)
Quarter: 2013Q3

REPORT INFORMATION
  Report Type: Spontaneous
  Country: US (occurrence: US)
  Receive Date: 20130830
  Receipt Date: 20130830
  Transmission Date: 20140515
  Serious: Yes (Other)
  Sender: FDA-Public Use
  Company Number: CHPA2013US013429

PATIENT
  Age: 75 Year
  Sex: Female

DRUGS (3)
  1. EXCEDRIN TENSION HEADACHE [Suspect]
     Indication: HEADACHE
     Dosage: UNK, UNK
     Route: 048
  2. ACETYLSALICYLIC ACID SANDOZ [Suspect]
     Dosage: UNK, UNK
  3. EXCEDRIN EXTRA STRENGTH [Suspect]
     Indication: HEADACHE
     Dosage: UNK, UNK
     Dates: end: 2005

REACTIONS (3)
  - Fibromyalgia [Unknown]
  - Arthritis [Unknown]
  - Abdominal pain upper [Unknown]
